FAERS Safety Report 7740771-X (Version None)
Quarter: 2011Q3

REPORT INFORMATION
  Report Type: 
  Country: None (occurrence: None)
  Receive Date: 20110909
  Receipt Date: 20110829
  Transmission Date: 20111222
  Serious: Yes (Other)
  Sender: FDA-Public Use
  Company Number: GB-JHP PHARMACEUTICALS, LLC-JHP201100442

PATIENT

DRUGS (1)
  1. EPINEPHRINE [Suspect]
     Indication: RESUSCITATION

REACTIONS (2)
  - SPEECH DISORDER DEVELOPMENTAL [None]
  - VISUAL IMPAIRMENT [None]
